FAERS Safety Report 21523586 (Version 2)
Quarter: 2022Q4

REPORT INFORMATION
  Report Type: Spontaneous
  Country: US (occurrence: US)
  Receive Date: 20221029
  Receipt Date: 20221227
  Transmission Date: 20230113
  Serious: No
  Sender: FDA-Public Use
  Company Number: US-UNITED THERAPEUTICS-UNT-2022-025312

PATIENT
  Age: 27 Year
  Sex: Male
  Weight: 77.098 kg

DRUGS (8)
  1. REMODULIN [Suspect]
     Active Substance: TREPROSTINIL
     Indication: Pulmonary arterial hypertension
     Dosage: UNK, CONTINUING
     Route: 058
     Dates: start: 20221011
  2. REMODULIN [Suspect]
     Active Substance: TREPROSTINIL
     Dosage: 0.006 ?G/KG, CONTINUING (SELF FILLED REMUNITY CASSETTE WITH 1.8 ML. REMUNITY PUMP RATE 18 MCL PER HO
     Route: 058
     Dates: start: 202210
  3. REMODULIN [Suspect]
     Active Substance: TREPROSTINIL
     Dosage: 0.006 ?G/KG, CONTINUING (SELF FILLED REMUNITY CASSETTE WITH 2.4 ML. REMUNITY PUMP RATE 27 MCL PER HO
     Route: 058
     Dates: start: 202210
  4. REMODULIN [Suspect]
     Active Substance: TREPROSTINIL
     Indication: Pulmonary arterial hypertension
     Dosage: UNK, CONTINUING
     Route: 041
     Dates: start: 202210
  5. REMODULIN [Suspect]
     Active Substance: TREPROSTINIL
     Indication: Pulmonary arterial hypertension
     Dosage: 0.040 ?G/KG, CONTINUING (SELF-FILLED REMUNITY CASSETTE WITH 3 ML AT A PUMP RATE OF 36 MCL/HOUR)
     Route: 058
     Dates: start: 2022
  6. UPTRAVI [Suspect]
     Active Substance: SELEXIPAG
     Indication: Product used for unknown indication
     Dosage: UNK
     Route: 065
     Dates: end: 20221011
  7. TADALAFIL [Concomitant]
     Active Substance: TADALAFIL
     Indication: Product used for unknown indication
     Route: 065
  8. LETAIRIS [Concomitant]
     Active Substance: AMBRISENTAN
     Indication: Product used for unknown indication
     Route: 065

REACTIONS (5)
  - Headache [Unknown]
  - Infusion site irritation [Recovering/Resolving]
  - Infusion site pain [Unknown]
  - Nasal congestion [Unknown]
  - Device failure [Unknown]

NARRATIVE: CASE EVENT DATE: 20221001
